FAERS Safety Report 23943280 (Version 1)
Quarter: 2024Q2

REPORT INFORMATION
  Report Type: Report from Study
  Country: IT (occurrence: None)
  Receive Date: 20240605
  Receipt Date: 20240605
  Transmission Date: 20240716
  Serious: Yes (Hospitalization, Other)
  Sender: FDA-Public Use
  Company Number: 2024A124945

PATIENT
  Age: 84 Year
  Sex: Male

DRUGS (8)
  1. ESOMEPRAZOLE [Suspect]
     Active Substance: ESOMEPRAZOLE
     Indication: Product used for unknown indication
     Dosage: AT AN UNSPECIFIED DOSE AND FREQUENCY
  2. OLIVE OIL\SOYBEAN OIL [Suspect]
     Active Substance: OLIVE OIL\SOYBEAN OIL
     Indication: Parenteral nutrition
     Dosage: (CLINOLEIC 20% 250ML)
  3. OLIVE OIL\SOYBEAN OIL [Suspect]
     Active Substance: OLIVE OIL\SOYBEAN OIL
     Indication: Parenteral nutrition
     Dates: start: 20240430
  4. OLIVE OIL\SOYBEAN OIL [Suspect]
     Active Substance: OLIVE OIL\SOYBEAN OIL
     Indication: Parenteral nutrition
     Dates: start: 20240315, end: 20240429
  5. CLINIMIX [Suspect]
     Active Substance: ALANINE\ARGININE\CALCIUM CHLORIDE\DEXTROSE\DEXTROSE MONOHYDRATE\GLYCINE\HISTIDINE\ISOLEUCINE\LEUCINE
     Indication: Parenteral nutrition
     Dosage: (CLINIMIX 5/16 OR 5/17.5 N17G35E 1.5L)
  6. CLINIMIX [Suspect]
     Active Substance: ALANINE\ARGININE\CALCIUM CHLORIDE\DEXTROSE\DEXTROSE MONOHYDRATE\GLYCINE\HISTIDINE\ISOLEUCINE\LEUCINE
     Indication: Parenteral nutrition
     Dates: start: 20240324
  7. CLINIMIX [Suspect]
     Active Substance: ALANINE\ARGININE\CALCIUM CHLORIDE\DEXTROSE\DEXTROSE MONOHYDRATE\GLYCINE\HISTIDINE\ISOLEUCINE\LEUCINE
     Indication: Parenteral nutrition
     Dates: start: 20240312, end: 20240323
  8. LASIX [Suspect]
     Active Substance: FUROSEMIDE
     Dosage: AT AN UNSPECIFIED DOSE AND FREQUENCY

REACTIONS (5)
  - Illness [Unknown]
  - Allergic reaction to excipient [Recovered/Resolved]
  - General physical health deterioration [Recovered/Resolved]
  - Mental impairment [Recovered/Resolved]
  - Erythema [Recovered/Resolved]
